FAERS Safety Report 16822894 (Version 4)
Quarter: 2019Q4

REPORT INFORMATION
  Report Type: Spontaneous
  Country: US (occurrence: US)
  Receive Date: 20190918
  Receipt Date: 20191227
  Transmission Date: 20200122
  Serious: Yes (Other)
  Sender: FDA-Public Use
  Company Number: US-GLAXOSMITHKLINE-US2019GSK169290

PATIENT
  Sex: Female

DRUGS (4)
  1. PANTOPRAZOLE [Suspect]
     Active Substance: PANTOPRAZOLE
     Indication: GASTROOESOPHAGEAL REFLUX DISEASE
     Dosage: 40 MG, UNK
     Route: 065
  2. ESOMEPRAZOLE. [Suspect]
     Active Substance: ESOMEPRAZOLE MAGNESIUM
     Indication: PRODUCT USED FOR UNKNOWN INDICATION
     Dosage: UNK
     Route: 065
  3. PREVACID [Suspect]
     Active Substance: LANSOPRAZOLE
     Indication: PRODUCT USED FOR UNKNOWN INDICATION
     Dosage: UNK
     Route: 065
  4. OMEPRAZOLE. [Suspect]
     Active Substance: OMEPRAZOLE
     Indication: GASTROOESOPHAGEAL REFLUX DISEASE
     Dosage: 20 MG, UNK
     Route: 065

REACTIONS (20)
  - Renal impairment [Unknown]
  - Stress urinary incontinence [Unknown]
  - Renal cyst [Unknown]
  - Diabetic nephropathy [Unknown]
  - Proteinuria [Unknown]
  - Hypertensive nephropathy [Unknown]
  - Urethral stenosis [Unknown]
  - Urinary hesitation [Unknown]
  - Nocturia [Unknown]
  - Pollakiuria [Unknown]
  - Chronic kidney disease [Unknown]
  - Urinary incontinence [Unknown]
  - Micturition urgency [Unknown]
  - Polyuria [Unknown]
  - Renal failure [Unknown]
  - Renal injury [Not Recovered/Not Resolved]
  - Nephrosclerosis [Unknown]
  - Nephrolithiasis [Unknown]
  - Dysuria [Unknown]
  - Leukocyturia [Unknown]
